FAERS Safety Report 16655609 (Version 1)
Quarter: 2019Q3

REPORT INFORMATION
  Report Type: Report from Study
  Country: ES (occurrence: ES)
  Receive Date: 20190801
  Receipt Date: 20190801
  Transmission Date: 20191004
  Serious: Yes (Death)
  Sender: FDA-Public Use
  Company Number: ES-TEVA-2019-ES-1086269

PATIENT
  Age: 44 Year
  Sex: Male

DRUGS (1)
  1. IMATINIB (2833A) [Suspect]
     Active Substance: IMATINIB MESYLATE
     Dates: start: 20170501

REACTIONS (1)
  - Blast cell crisis [Fatal]

NARRATIVE: CASE EVENT DATE: 20180501
